FAERS Safety Report 10348967 (Version 1)
Quarter: 2014Q3

REPORT INFORMATION
  Report Type: Spontaneous
  Country: US (occurrence: US)
  Receive Date: 20140729
  Receipt Date: 20140729
  Transmission Date: 20150326
  Serious: No
  Sender: FDA-Public Use
  Company Number: US-BAUSCH-BL-2013-005348

PATIENT
  Sex: Female

DRUGS (1)
  1. OPCON-A [Suspect]
     Active Substance: NAPHAZOLINE HYDROCHLORIDE\PHENIRAMINE MALEATE
     Indication: EYE ALLERGY
     Dosage: DROP; RIGHT EYE
     Route: 047

REACTIONS (3)
  - Headache [Not Recovered/Not Resolved]
  - Ocular discomfort [Unknown]
  - Mydriasis [Recovering/Resolving]
